FAERS Safety Report 16950982 (Version 1)
Quarter: 2019Q4

REPORT INFORMATION
  Report Type: Spontaneous
  Country: US (occurrence: US)
  Receive Date: 20191023
  Receipt Date: 20191023
  Transmission Date: 20200122
  Serious: No
  Sender: FDA-Public Use
  Company Number: US-MYLANLABS-2019M1096154

PATIENT
  Sex: Female
  Weight: 104 kg

DRUGS (3)
  1. NOVOLOG [Concomitant]
     Active Substance: INSULIN ASPART
  2. LETROZOLE. [Suspect]
     Active Substance: LETROZOLE
     Indication: INFERTILITY FEMALE
     Dosage: 2.5 MG TABLET, TAKE 2 DAILY (5MG)
     Route: 048
     Dates: start: 20111105, end: 20111109
  3. LEVEMIR [Concomitant]
     Active Substance: INSULIN DETEMIR

REACTIONS (3)
  - Maternal exposure during pregnancy [Recovered/Resolved]
  - Off label use [Recovered/Resolved]
  - Hot flush [Recovered/Resolved]

NARRATIVE: CASE EVENT DATE: 201111
